FAERS Safety Report 10036440 (Version 3)
Quarter: 2015Q4

REPORT INFORMATION
  Report Type: Other
  Country: GB (occurrence: GB)
  Receive Date: 20140325
  Receipt Date: 20151014
  Transmission Date: 20160304
  Serious: Yes (Death)
  Sender: FDA-Public Use
  Company Number: GB-MYLANLABS-2014S1005703

PATIENT

DRUGS (12)
  1. ALBUTEROL. [Suspect]
     Active Substance: ALBUTEROL
     Dosage: 100 MG,UNK
     Route: 065
  2. SPIRIVA [Suspect]
     Active Substance: TIOTROPIUM BROMIDE MONOHYDRATE
     Indication: CHRONIC OBSTRUCTIVE PULMONARY DISEASE
     Dosage: 18 ?G,UNK
  3. NYSTATIN. [Suspect]
     Active Substance: NYSTATIN
     Dosage: 100000 IU,UNK
  4. FOSAMAX [Suspect]
     Active Substance: ALENDRONATE SODIUM
     Dosage: 70 MG,QW
     Route: 048
  5. LISINOPRIL. [Suspect]
     Active Substance: LISINOPRIL
     Dosage: 10 MG,UNK
  6. TRAMADOL HYDROCHLORIDE. [Suspect]
     Active Substance: TRAMADOL HYDROCHLORIDE
     Dosage: 50 MG,QD
     Route: 048
  7. SINGULAIR [Suspect]
     Active Substance: MONTELUKAST SODIUM
     Dosage: 10 MG,UNK
     Route: 048
  8. HUMULIN NOS [Suspect]
     Active Substance: INSULIN HUMAN
     Dosage: 100 IU,UNK
     Route: 042
  9. BUMETANIDE. [Suspect]
     Active Substance: BUMETANIDE
     Indication: PRODUCT USED FOR UNKNOWN INDICATION
     Dosage: 1 MG,UNK
  10. HUMALOG [Suspect]
     Active Substance: INSULIN LISPRO
     Dosage: 100 IU,UNK
     Route: 065
  11. SERETIDE [Suspect]
     Active Substance: FLUTICASONE FUROATE\SALMETEROL XINAFOATE
     Dosage: 500 IU,UNK
  12. ACETAMINOPHEN. [Suspect]
     Active Substance: ACETAMINOPHEN
     Dosage: 500 MG,UNK
     Route: 048

REACTIONS (1)
  - Pneumonia [Fatal]
